FAERS Safety Report 21386755 (Version 1)
Quarter: 2022Q3

REPORT INFORMATION
  Report Type: Spontaneous
  Country: US (occurrence: US)
  Receive Date: 20220928
  Receipt Date: 20220928
  Transmission Date: 20221027
  Serious: No
  Sender: FDA-Public Use
  Company Number: US-BAYER-2022A129178

PATIENT
  Sex: Female

DRUGS (4)
  1. MIRENA [Suspect]
     Active Substance: LEVONORGESTREL
     Indication: Dermatitis atopic
     Dosage: 20?G/DAY
     Route: 015
     Dates: start: 20171025
  2. MIRENA [Suspect]
     Active Substance: LEVONORGESTREL
     Indication: Dermatitis allergic
  3. MIRENA [Suspect]
     Active Substance: LEVONORGESTREL
     Indication: Contraception
  4. DUPIXENT [Concomitant]
     Active Substance: DUPILUMAB

REACTIONS (4)
  - Rash macular [None]
  - Menstruation delayed [None]
  - Vaginal haemorrhage [None]
  - Arthralgia [None]
